FAERS Safety Report 4707762-4 (Version None)
Quarter: 2005Q2

REPORT INFORMATION
  Report Type: 
  Country: None (occurrence: None)
  Receive Date: 20050629
  Receipt Date: 20050415
  Transmission Date: 20051028
  Serious: No
  Sender: FDA-Public Use
  Company Number: 05P-163-0297565-00

PATIENT
  Age: 68 Year
  Sex: Male
  Weight: 62.5964 kg

DRUGS (7)
  1. HUMIRA [Suspect]
     Indication: RHEUMATOID ARTHRITIS
     Dosage: 40 MG, 1 IN 2 WK, SUBCUTANEOUS
     Route: 058
     Dates: start: 20040901
  2. CLONIDINE [Concomitant]
  3. FOLIC ACID [Concomitant]
  4. ASCORBIC ACID [Concomitant]
  5. B-KOMPLEX ^LECIVA^ [Concomitant]
  6. METHOTREXATE [Concomitant]
  7. NAPROXEN SODIUM [Concomitant]

REACTIONS (1)
  - COUGH [None]
